FAERS Safety Report 6676954-X (Version None)
Quarter: 2010Q2

REPORT INFORMATION
  Report Type: 
  Country: None (occurrence: None)
  Receive Date: 20100412
  Receipt Date: 20100402
  Transmission Date: 20101027
  Serious: Yes (Hospitalization)
  Sender: FDA-Public Use
  Company Number: US-JNJFOC-20100401311

PATIENT
  Sex: Female
  Weight: 56.7 kg

DRUGS (6)
  1. FENTANYL CITRATE [Suspect]
     Indication: INTESTINAL OBSTRUCTION
     Route: 062
  2. FENTANYL CITRATE [Suspect]
     Indication: INTESTINAL OBSTRUCTION
     Route: 062
  3. PRILOSEC [Concomitant]
     Indication: NAUSEA
     Route: 048
  4. LEVSIN [Concomitant]
     Indication: GASTROINTESTINAL DISORDER
     Route: 048
  5. XANAX [Concomitant]
     Indication: ANXIETY
     Route: 048
  6. CYMBALTA [Concomitant]
     Indication: DEPRESSION
     Route: 048

REACTIONS (8)
  - APPLICATION SITE PAIN [None]
  - APPLICATION SITE PRURITUS [None]
  - APPLICATION SITE RASH [None]
  - APPLICATION SITE SCAR [None]
  - BREAST CANCER [None]
  - BREAST INFECTION [None]
  - NAUSEA [None]
  - WEST NILE VIRAL INFECTION [None]
